FAERS Safety Report 24803997 (Version 1)
Quarter: 2025Q1

REPORT INFORMATION
  Report Type: Spontaneous
  Country: FR (occurrence: FR)
  Receive Date: 20250103
  Receipt Date: 20250103
  Transmission Date: 20250409
  Serious: Yes (Other)
  Sender: AUROBINDO
  Company Number: FR-AFSSAPS-BX2024002348

PATIENT
  Age: 10 Year
  Sex: Female

DRUGS (3)
  1. RISPERIDONE [Suspect]
     Active Substance: RISPERIDONE
     Indication: Obsessive-compulsive disorder
     Dosage: 0.5 MILLIGRAM, ONCE A DAY (0.25 MG MORNING AND EVENING)
     Route: 048
     Dates: start: 20240830
  2. SERTRALINE [Suspect]
     Active Substance: SERTRALINE HYDROCHLORIDE
     Indication: Obsessive-compulsive disorder
     Dosage: 125 MILLIGRAM, ONCE A DAY
     Route: 048
     Dates: start: 20240829
  3. ATARAX [Concomitant]
     Active Substance: HYDROXYZINE HYDROCHLORIDE
     Indication: Product used for unknown indication
     Route: 065

REACTIONS (2)
  - Hyperprolactinaemia [Recovering/Resolving]
  - Gynaecomastia [Recovering/Resolving]

NARRATIVE: CASE EVENT DATE: 20241001
